FAERS Safety Report 9836908 (Version 1)
Quarter: 2013Q4

REPORT INFORMATION
  Report Type: Spontaneous
  Country: US (occurrence: None)
  Receive Date: 20131121
  Receipt Date: 20131121
  Transmission Date: 20140711
  Serious: Yes (Other)
  Sender: FDA-Public Use
  Company Number: 1000048089

PATIENT
  Age: 59 Year
  Sex: Male

DRUGS (7)
  1. TUDORZA PRESSAIR [Suspect]
     Indication: CHRONIC OBSTRUCTIVE PULMONARY DISEASE
     Dosage: 400 MCG (400 MCG, 2 IN 1 D), ORAL
     Route: 048
     Dates: start: 201307
  2. METOPROLOL (METOPROLOL) (METOPROLOL) [Concomitant]
  3. ZANAFLEX (TIZANIDINE HYDROCHLORIDE) (TIZANIDINE HYDROCHLORIDE) [Concomitant]
  4. POTASSIUM (POTASSIUM) (POTASSIUM) [Concomitant]
  5. OMEPRAZOLE (OMEPRAZOLE) (OMEPRAZOLE) [Concomitant]
  6. PREDNISONE (PREDNISONE) (PREDNISONE) [Concomitant]
  7. MOBIC (MELOXICAM) (MELOXICAM) [Concomitant]

REACTIONS (5)
  - Chest pain [None]
  - Vision blurred [None]
  - Headache [None]
  - Tremor [None]
  - Dysphonia [None]
